FAERS Safety Report 11566583 (Version 1)
Quarter: 2015Q3

REPORT INFORMATION
  Report Type: Spontaneous
  Country: US (occurrence: US)
  Receive Date: 20150916
  Receipt Date: 20150916
  Transmission Date: 20151125
  Serious: No
  Sender: FDA-Public Use
  Company Number: US-ELI_LILLY_AND_COMPANY-US200906003126

PATIENT
  Age: 81 Year
  Sex: Female

DRUGS (3)
  1. FORTEO [Suspect]
     Active Substance: TERIPARATIDE
     Dosage: UNK, UNK
     Dates: start: 20090611, end: 2009
  2. FORTEO [Suspect]
     Active Substance: TERIPARATIDE
     Dosage: UNK, UNK
     Dates: start: 200905, end: 2009
  3. ALPRAZOLAM. [Concomitant]
     Active Substance: ALPRAZOLAM
     Dosage: 0.5 D/F, SOMETIMES

REACTIONS (11)
  - Malaise [Recovered/Resolved]
  - Nervousness [Unknown]
  - Blood pressure increased [Unknown]
  - Dizziness [Unknown]
  - Fatigue [Unknown]
  - Depression [Unknown]
  - Chest pain [Unknown]
  - Dehydration [Unknown]
  - Panic attack [Unknown]
  - Asthenia [Unknown]
  - Insomnia [Recovered/Resolved]

NARRATIVE: CASE EVENT DATE: 2009
